FAERS Safety Report 20090282 (Version 1)
Quarter: 2021Q4

REPORT INFORMATION
  Report Type: Report from Study
  Country: DE (occurrence: None)
  Receive Date: 20211119
  Receipt Date: 20211119
  Transmission Date: 20220304
  Serious: Yes (Hospitalization)
  Sender: FDA-Public Use
  Company Number: DE-ROCHE-2949234

PATIENT
  Age: 55 Year
  Sex: Female
  Weight: 94.4 kg

DRUGS (5)
  1. OBINUTUZUMAB [Suspect]
     Active Substance: OBINUTUZUMAB
     Indication: Chronic lymphocytic leukaemia
     Dosage: 1000 MG, INDUCTION CYCLE 1: D1 - 100 MG, D1 (OR D2) - 900 MG, D8 + D15 - 1000 MG I.V.; CYCLE 2 - 6:
     Route: 042
     Dates: start: 20211026
  2. NEUPOGEN [Concomitant]
     Active Substance: FILGRASTIM
     Dosage: 2840 IE
     Route: 042
     Dates: start: 20211104, end: 20211104
  3. PANTOPRAZOLE SODIUM [Concomitant]
     Active Substance: PANTOPRAZOLE SODIUM
     Route: 048
     Dates: start: 20190909
  4. PIPERACILLIN AND TAZOBACTAM [Concomitant]
     Active Substance: PIPERACILLIN SODIUM\TAZOBACTAM SODIUM
     Route: 042
     Dates: start: 20211028, end: 202110
  5. MEROPENEM [Concomitant]
     Active Substance: MEROPENEM
     Route: 042
     Dates: start: 202110, end: 202111

REACTIONS (2)
  - Tumour lysis syndrome [Not Recovered/Not Resolved]
  - Blood lactate dehydrogenase increased [Recovered/Resolved]

NARRATIVE: CASE EVENT DATE: 20211028
